FAERS Safety Report 8932758 (Version 1)
Quarter: 2012Q4

REPORT INFORMATION
  Report Type: Report from Study
  Country: US (occurrence: US)
  Receive Date: 20121128
  Receipt Date: 20121128
  Transmission Date: 20130627
  Serious: Yes (Hospitalization)
  Sender: FDA-Public Use
  Company Number: US-009507513-1211USA009023

PATIENT
  Age: 64 Year
  Sex: Female
  Weight: 64 kg

DRUGS (16)
  1. TEMODAR [Suspect]
     Indication: GLIOBLASTOMA MULTIFORME
  2. BEVACIZUMAB [Suspect]
     Indication: GLIOBLASTOMA MULTIFORME
     Dosage: 10 mg/kg, q2w
     Route: 042
     Dates: start: 20090323
  3. ERLOTINIB HYDROCHLORIDE [Suspect]
     Indication: GLIOBLASTOMA MULTIFORME
     Dosage: UNK UNK, qd
     Route: 042
     Dates: start: 20090312
  4. DILANTIN [Concomitant]
  5. HYDROCHLOROTHIAZIDE [Concomitant]
  6. LIPITOR [Concomitant]
  7. DECADRON [Concomitant]
     Dosage: 2 mg, qd
     Dates: start: 20090311
  8. FOSAMAX [Concomitant]
     Dosage: UNK
     Dates: start: 200403
  9. IMODIUM [Concomitant]
     Dosage: UNK
     Dates: start: 20090319
  10. BENICAR [Concomitant]
     Dosage: UNK
     Dates: start: 20090408
  11. PROTONIX [Concomitant]
     Dosage: UNK
     Dates: start: 20090403
  12. AMBIEN [Concomitant]
     Dosage: UNK
     Dates: start: 20090405
  13. PROVENTIL [Concomitant]
     Dosage: UNK
     Dates: start: 20090404
  14. LOMOTIL [Concomitant]
     Dosage: UNK
     Dates: start: 20090405
  15. SENNA [Concomitant]
     Dosage: UNK
     Dates: start: 20090421
  16. ZOFRAN [Concomitant]
     Dosage: UNK
     Dates: start: 20090421

REACTIONS (1)
  - Pneumonitis [Recovered/Resolved]
